FAERS Safety Report 9637703 (Version 1)
Quarter: 2013Q4

REPORT INFORMATION
  Report Type: Spontaneous
  Country: CA (occurrence: None)
  Receive Date: 20131018
  Receipt Date: 20131018
  Transmission Date: 20140711
  Serious: Yes (Life-Threatening, Hospitalization)
  Sender: FDA-Public Use
  Company Number: 2013AP008967

PATIENT
  Sex: Male

DRUGS (12)
  1. CIPROFLOXACIN [Suspect]
     Indication: PNEUMONIA ASPIRATION
     Route: 042
  2. CLINDAMYCIN (CLINDAMYCIN) [Suspect]
     Indication: PNEUMONIA ASPIRATION
     Route: 042
  3. METHADONE (METHADONE) [Suspect]
     Indication: DRUG ABUSER
     Route: 048
  4. DALTEPARIN (DALTEPARIN) [Concomitant]
  5. THIAMINE (THIAMINE) [Concomitant]
  6. FOLIC ACID (FOLIC ACID) [Concomitant]
  7. METHOTRIMEPRAZINE (METHOTRIMEPRAZINE) [Concomitant]
  8. MORPHINE [Concomitant]
  9. MORPHINE [Concomitant]
  10. MORPHINE [Concomitant]
  11. ACETAMINOPHEN (PARACETAMOL) [Concomitant]
  12. CODEINE (CODEINE) [Concomitant]

REACTIONS (5)
  - Drug interaction [None]
  - Respiratory depression [None]
  - Respiratory failure [None]
  - Miosis [None]
  - Somnolence [None]
